FAERS Safety Report 6906835-5 (Version None)
Quarter: 2010Q3

REPORT INFORMATION
  Report Type: 
  Country: None (occurrence: None)
  Receive Date: 20100804
  Receipt Date: 20100727
  Transmission Date: 20110219
  Serious: Yes (Hospitalization, Other)
  Sender: FDA-Public Use
  Company Number: US-ELI_LILLY_AND_COMPANY-US201002003762

PATIENT
  Sex: Male
  Weight: 117.1 kg

DRUGS (4)
  1. BYETTA [Suspect]
     Dosage: UNK, UNK
     Dates: start: 20070101, end: 20091016
  2. METFORMIN HCL [Concomitant]
     Indication: DIABETES MELLITUS
  3. SIMVASTATIN [Concomitant]
     Indication: HYPERTRIGLYCERIDAEMIA
  4. LOPID [Concomitant]
     Indication: HYPERTRIGLYCERIDAEMIA

REACTIONS (2)
  - GASTROINTESTINAL DISORDER [None]
  - PANCREATITIS [None]
